FAERS Safety Report 25223283 (Version 1)
Quarter: 2025Q2

REPORT INFORMATION
  Report Type: Spontaneous
  Country: US (occurrence: US)
  Receive Date: 20250422
  Receipt Date: 20250422
  Transmission Date: 20250717
  Serious: Yes (Other)
  Sender: DR REDDYS
  Company Number: None

PATIENT
  Age: 9 Year
  Sex: Female

DRUGS (3)
  1. TACROLIMUS [Suspect]
     Active Substance: TACROLIMUS
     Indication: Immunosuppressant drug therapy
     Dates: start: 2017, end: 2020
  2. SIROLIMUS [Suspect]
     Active Substance: SIROLIMUS
     Indication: Immunosuppressant drug therapy
     Dates: start: 2017, end: 2022
  3. PREDNISONE [Suspect]
     Active Substance: PREDNISONE
     Indication: Immunosuppressant drug therapy
     Dates: start: 2017, end: 2020

REACTIONS (5)
  - Polyomavirus-associated nephropathy [Recovered/Resolved]
  - End stage renal disease [Recovered/Resolved]
  - Hypocalcaemia [Unknown]
  - Anaemia [Unknown]
  - Azotaemia [Unknown]

NARRATIVE: CASE EVENT DATE: 20180101
